FAERS Safety Report 7942969-4 (Version None)
Quarter: 2011Q4

REPORT INFORMATION
  Report Type: 
  Country: None (occurrence: None)
  Receive Date: 20111128
  Receipt Date: 20111115
  Transmission Date: 20120403
  Serious: Yes (Hospitalization)
  Sender: FDA-Public Use
  Company Number: FR-MERCK-1111USA02664

PATIENT
  Age: 61 Year
  Sex: Male

DRUGS (8)
  1. CRESTOR [Concomitant]
     Route: 048
  2. RAMIPRIL [Concomitant]
     Route: 048
  3. NOROXIN [Suspect]
     Indication: URINARY TRACT INFECTION
     Route: 048
     Dates: start: 20110101
  4. FELODIPINE [Concomitant]
     Route: 048
  5. PERMIXON [Concomitant]
     Route: 048
  6. OMEPRAZOLE [Concomitant]
     Route: 048
  7. ASPIRIN [Concomitant]
     Route: 048
  8. NOROXIN [Suspect]
     Route: 048
     Dates: start: 20110101

REACTIONS (2)
  - SKIN TEST NEGATIVE [None]
  - ANAPHYLACTIC REACTION [None]
